FAERS Safety Report 7487881-2 (Version None)
Quarter: 2011Q2

REPORT INFORMATION
  Report Type: 
  Country: None (occurrence: None)
  Receive Date: 20110518
  Receipt Date: 20110509
  Transmission Date: 20111010
  Serious: Yes (Hospitalization)
  Sender: FDA-Public Use
  Company Number: FR-JNJFOC-20110306654

PATIENT
  Sex: Female
  Weight: 66 kg

DRUGS (4)
  1. ISENTRESS [Concomitant]
     Indication: HIV INFECTION
     Route: 048
     Dates: start: 20101213, end: 20110310
  2. CELSENTRI [Concomitant]
     Indication: HIV INFECTION
     Route: 048
     Dates: start: 20101213, end: 20110310
  3. INTELENCE [Suspect]
     Indication: HIV INFECTION
     Route: 048
     Dates: start: 20101213, end: 20110310
  4. VIREAD [Concomitant]
     Indication: HEPATITIS B
     Route: 048
     Dates: start: 20110317

REACTIONS (5)
  - TRANSAMINASES INCREASED [None]
  - JAUNDICE [None]
  - PROTHROMBIN TIME RATIO DECREASED [None]
  - ABDOMINAL PAIN [None]
  - VOMITING [None]
